FAERS Safety Report 25602316 (Version 1)
Quarter: 2025Q3

REPORT INFORMATION
  Report Type: Spontaneous
  Country: US (occurrence: US)
  Receive Date: 20250724
  Receipt Date: 20250724
  Transmission Date: 20251021
  Serious: No
  Sender: BAYER HEALTHCARE PHARMACEUTICALS INC.
  Company Number: US-BAYER-2025A096737

PATIENT
  Age: 30 Year
  Sex: Female

DRUGS (1)
  1. LEVONORGESTREL [Suspect]
     Active Substance: LEVONORGESTREL
     Indication: Oral contraception
     Route: 048
     Dates: start: 20240109, end: 20250607

REACTIONS (3)
  - Abdominal distension [Recovered/Resolved]
  - Dysmenorrhoea [Recovered/Resolved]
  - Inflammation [Recovered/Resolved]
